FAERS Safety Report 10049826 (Version 1)
Quarter: 2014Q1

REPORT INFORMATION
  Report Type: Spontaneous
  Country: US (occurrence: None)
  Receive Date: 20140328
  Receipt Date: 20140328
  Transmission Date: 20141002
  Serious: Yes (Hospitalization)
  Sender: FDA-Public Use
  Company Number: AE14-025

PATIENT
  Age: 77 Year
  Sex: Female
  Weight: 89.3 kg

DRUGS (12)
  1. LORTAB [Suspect]
     Indication: OSTEOARTHRITIS
     Route: 048
     Dates: start: 20130101, end: 20130901
  2. LORTAB [Suspect]
     Indication: PAIN
     Route: 048
     Dates: start: 20130101, end: 20130901
  3. LORTAB [Suspect]
     Indication: OSTEOARTHRITIS
     Route: 048
     Dates: start: 20130101, end: 20130901
  4. LORTAB [Suspect]
     Indication: PAIN
     Route: 048
     Dates: start: 20130101, end: 20130901
  5. METAXALONE [Concomitant]
  6. CELECOXIB OR NAPROXEN AND IBUPROFEN [Concomitant]
  7. CYMBALTA [Concomitant]
  8. NEXIUM [Concomitant]
  9. SYNTHROID [Concomitant]
  10. CELEXA [Concomitant]
  11. PRAVASTATIN [Concomitant]
  12. LOZOL [Concomitant]

REACTIONS (2)
  - Coma [None]
  - Drug interaction [None]
